FAERS Safety Report 9595279 (Version 1)
Quarter: 2013Q4

REPORT INFORMATION
  Report Type: Spontaneous
  Country: US (occurrence: US)
  Receive Date: 20131004
  Receipt Date: 20131004
  Transmission Date: 20140711
  Serious: No
  Sender: FDA-Public Use
  Company Number: US-PFIZER INC-2013282538

PATIENT
  Age: 71 Year
  Sex: Male

DRUGS (1)
  1. SUTENT [Suspect]
     Dosage: 25 MG, 1X/DAY (X21 DAYS, OFFX14)
     Route: 048
     Dates: start: 20130718, end: 201309

REACTIONS (1)
  - Diarrhoea [Unknown]
